FAERS Safety Report 10902410 (Version 1)
Quarter: 2015Q1

REPORT INFORMATION
  Report Type: Spontaneous
  Country: TR (occurrence: TR)
  Receive Date: 20150310
  Receipt Date: 20150310
  Transmission Date: 20150721
  Serious: Yes (Other)
  Sender: FDA-Public Use
  Company Number: TR-ELI_LILLY_AND_COMPANY-TR201503002489

PATIENT
  Age: 50 Year
  Sex: Female

DRUGS (3)
  1. OLANZAPINE. [Suspect]
     Active Substance: OLANZAPINE
     Indication: BIPOLAR DISORDER
     Dosage: 10 MG, QD
     Route: 065
  2. OLANZAPINE. [Suspect]
     Active Substance: OLANZAPINE
     Dosage: 5 MG, QD
     Route: 065
  3. OLANZAPINE. [Suspect]
     Active Substance: OLANZAPINE
     Dosage: 2.5 MG, QD
     Route: 065

REACTIONS (1)
  - Restless legs syndrome [Recovered/Resolved]
